FAERS Safety Report 23385292 (Version 1)
Quarter: 2024Q1

REPORT INFORMATION
  Report Type: Spontaneous
  Country: US (occurrence: US)
  Receive Date: 20240110
  Receipt Date: 20240110
  Transmission Date: 20240410
  Serious: No
  Sender: FDA-Public Use
  Company Number: US-DRL-USA-SPO/USA/24/0000356

PATIENT
  Age: 1 Year

DRUGS (1)
  1. VIGABATRIN [Suspect]
     Active Substance: VIGABATRIN
     Indication: Product used for unknown indication
     Dosage: QUANTITY 120 AND DAY SUPPLY 30
     Route: 048

REACTIONS (1)
  - Product use issue [Unknown]
